FAERS Safety Report 7986803-5 (Version None)
Quarter: 2011Q4

REPORT INFORMATION
  Report Type: 
  Country: None (occurrence: None)
  Receive Date: 20111216
  Receipt Date: 20110826
  Transmission Date: 20120403
  Serious: No
  Sender: FDA-Public Use
  Company Number: US-BRISTOL-MYERS SQUIBB COMPANY-16008989

PATIENT
  Age: 40 Year
  Sex: Female

DRUGS (4)
  1. ABILIFY [Suspect]
     Indication: BIPOLAR DISORDER
     Dosage: 1DF IS 10 TO 20MG
  2. LITHIUM [Concomitant]
  3. ATIVAN [Concomitant]
  4. EFFEXOR [Concomitant]

REACTIONS (1)
  - TARDIVE DYSKINESIA [None]
